FAERS Safety Report 19954611 (Version 1)
Quarter: 2021Q4

REPORT INFORMATION
  Report Type: Spontaneous
  Country: US (occurrence: US)
  Receive Date: 20211014
  Receipt Date: 20211014
  Transmission Date: 20220304
  Serious: Yes (Other)
  Sender: FDA-Public Use
  Company Number: US-PFIZER INC-2021325155

PATIENT
  Sex: Male

DRUGS (2)
  1. COLESTIPOL HYDROCHLORIDE [Suspect]
     Active Substance: COLESTIPOL HYDROCHLORIDE
     Indication: Blood cholesterol increased
     Dosage: 2 G, DAILY
     Dates: start: 201801, end: 2020
  2. COLESTIPOL HYDROCHLORIDE [Suspect]
     Active Substance: COLESTIPOL HYDROCHLORIDE
     Dosage: 1 G, DAILY
     Dates: start: 2020, end: 2021

REACTIONS (8)
  - Choking [Unknown]
  - Product size issue [Unknown]
  - Product use complaint [Unknown]
  - Salivary hypersecretion [Unknown]
  - Choking sensation [Unknown]
  - Nausea [Unknown]
  - Weight decreased [Unknown]
  - Wrong technique in product usage process [Unknown]
